FAERS Safety Report 4372890-2 (Version None)
Quarter: 2004Q2

REPORT INFORMATION
  Report Type: 
  Country: None (occurrence: None)
  Receive Date: 20040603
  Receipt Date: 20040518
  Transmission Date: 20050107
  Serious: Yes (Hospitalization)
  Sender: FDA-Public Use
  Company Number: B01200300081

PATIENT
  Age: 59 Year
  Sex: Female

DRUGS (5)
  1. OXALIPLATIN- SOLUTION - 122.4 MG [Suspect]
     Indication: COLORECTAL CANCER METASTATIC
     Dosage: 122.4 MG Q3W, 288 MG Q3W; INTRAVENOUS NOS
     Route: 042
     Dates: start: 20021219, end: 20021219
  2. IRINOTECAN - SOLUTION -288 MG [Suspect]
     Dosage: 288 MG Q2W, INTRAVENOUS NOS
     Route: 042
     Dates: start: 20021219, end: 20021219
  3. LIPITOR [Concomitant]
  4. NITROPATCH (GLYCERYL TRINITRATE) [Concomitant]
  5. INSULIN NOVOLIN [Concomitant]

REACTIONS (5)
  - GASTRITIS [None]
  - HAEMOGLOBIN DECREASED [None]
  - HYPOKALAEMIA [None]
  - INTESTINAL OBSTRUCTION [None]
  - PYREXIA [None]
